FAERS Safety Report 17220141 (Version 1)
Quarter: 2019Q4

REPORT INFORMATION
  Report Type: Spontaneous
  Country: IT (occurrence: IT)
  Receive Date: 20191231
  Receipt Date: 20191231
  Transmission Date: 20200122
  Serious: Yes (Life-Threatening, Hospitalization)
  Sender: FDA-Public Use
  Company Number: IT-MYLANLABS-2019M1131951

PATIENT
  Age: 48 Year
  Sex: Male
  Weight: 58 kg

DRUGS (4)
  1. PREDNISONE. [Suspect]
     Active Substance: PREDNISONE
     Indication: RENAL TRANSPLANT
     Dosage: 5 MG, QD
     Route: 065
     Dates: start: 20170904
  2. BINOCRIT [Suspect]
     Active Substance: ERYTHROPOIETIN
     Dosage: 5000 IU, TIW
     Route: 058
     Dates: start: 20190831
  3. BINOCRIT [Suspect]
     Active Substance: ERYTHROPOIETIN
     Indication: ANAEMIA
     Dosage: 5000 IU, TIW
     Route: 058
     Dates: start: 20181005
  4. SANDIMMUN NEORAL [Suspect]
     Active Substance: CYCLOSPORINE
     Indication: RENAL TRANSPLANT
     Dosage: 100 MG, QD
     Route: 065
     Dates: start: 20170904, end: 20190903

REACTIONS (3)
  - Pneumonia [Unknown]
  - Haemoptysis [Unknown]
  - Chest pain [Unknown]

NARRATIVE: CASE EVENT DATE: 20190903
